FAERS Safety Report 11482561 (Version 2)
Quarter: 2015Q4

REPORT INFORMATION
  Report Type: Report from Study
  Country: VE (occurrence: VE)
  Receive Date: 20150909
  Receipt Date: 20151008
  Transmission Date: 20160304
  Serious: Yes (Other)
  Sender: FDA-Public Use
  Company Number: PHHY2015VE107428

PATIENT
  Age: 58 Year
  Sex: Female

DRUGS (5)
  1. LAMPRENE//CLOFAZIMINE [Concomitant]
     Indication: HYPERTENSION
     Dosage: 50 MG, QD
     Route: 065
     Dates: start: 2015
  2. ACLASTA [Suspect]
     Active Substance: ZOLEDRONIC ACID
     Indication: OSTEOPOROSIS
     Dosage: 1 DF, Q12MO
     Route: 065
     Dates: start: 20120419
  3. EUTIROX [Concomitant]
     Active Substance: LEVOTHYROXINE SODIUM
     Indication: THYROID DISORDER
     Dosage: 100 MG, QD
     Route: 065
  4. LOSARTAN POTASSIUM. [Concomitant]
     Active Substance: LOSARTAN POTASSIUM
     Indication: HYPERTENSION
     Dosage: 50 MG, UNK
     Route: 048
  5. LYRICA [Concomitant]
     Active Substance: PREGABALIN
     Indication: PRODUCT USED FOR UNKNOWN INDICATION
     Dosage: 300 MG, QD
     Route: 065

REACTIONS (9)
  - Osteoporosis [Recovering/Resolving]
  - Gait disturbance [Recovering/Resolving]
  - Patient-device incompatibility [Recovering/Resolving]
  - Bone disorder [Unknown]
  - Foot fracture [Recovered/Resolved with Sequelae]
  - Ankle fracture [Recovering/Resolving]
  - Upper limb fracture [Recovered/Resolved with Sequelae]
  - Accident [Recovering/Resolving]
  - Fracture [Unknown]

NARRATIVE: CASE EVENT DATE: 20150831
